FAERS Safety Report 11377717 (Version 2)
Quarter: 2015Q3

REPORT INFORMATION
  Report Type: Spontaneous
  Country: US (occurrence: US)
  Receive Date: 20150811
  Receipt Date: 20150903
  Transmission Date: 20151125
  Serious: No
  Sender: FDA-Public Use
  Company Number: US-ELI_LILLY_AND_COMPANY-US200905001312

PATIENT
  Age: -1 Year
  Sex: Male
  Weight: 7.71 kg

DRUGS (4)
  1. HUMALOG [Suspect]
     Active Substance: INSULIN LISPRO
     Route: 063
  2. HUMULIN N [Suspect]
     Active Substance: INSULIN HUMAN
     Route: 063
  3. HUMALOG [Suspect]
     Active Substance: INSULIN LISPRO
     Route: 064
  4. HUMULIN N [Suspect]
     Active Substance: INSULIN HUMAN
     Route: 064

REACTIONS (3)
  - Exposure during breast feeding [Unknown]
  - Foetal exposure during pregnancy [Unknown]
  - Blood glucose decreased [Unknown]

NARRATIVE: CASE EVENT DATE: 20081024
